FAERS Safety Report 18779999 (Version 1)
Quarter: 2021Q1

REPORT INFORMATION
  Report Type: Spontaneous
  Country: US (occurrence: US)
  Receive Date: 20210122
  Receipt Date: 20210122
  Transmission Date: 20210419
  Serious: No
  Sender: FDA-Public Use
  Company Number: None

PATIENT
  Age: 70 Year
  Sex: Male

DRUGS (1)
  1. PROCRIT [Suspect]
     Active Substance: ERYTHROPOIETIN
     Indication: NEPHROGENIC ANAEMIA
     Dosage: ?          OTHER STRENGTH:20,000 U/ML;OTHER DOSE:24,000 UNITS;?
     Route: 058
     Dates: start: 202001, end: 20210122

REACTIONS (1)
  - Small intestine carcinoma [None]

NARRATIVE: CASE EVENT DATE: 20210122
